FAERS Safety Report 5635984-7 (Version None)
Quarter: 2008Q1

REPORT INFORMATION
  Report Type: 
  Country: None (occurrence: None)
  Receive Date: 20080224
  Receipt Date: 20080219
  Transmission Date: 20080703
  Serious: Yes (Life-Threatening)
  Sender: FDA-Public Use
  Company Number: PHNU2008DE01037

PATIENT
  Sex: Male

DRUGS (1)
  1. RASILEZ [Suspect]
     Dates: start: 20080101

REACTIONS (2)
  - LOSS OF CONSCIOUSNESS [None]
  - RESUSCITATION [None]
